FAERS Safety Report 9070761 (Version 2)
Quarter: 2013Q1

REPORT INFORMATION
  Report Type: Report from Study
  Country: JP (occurrence: JP)
  Receive Date: 20130129
  Receipt Date: 20130329
  Transmission Date: 20140127
  Serious: Yes (Other)
  Sender: FDA-Public Use
  Company Number: JP-ROCHE-1184918

PATIENT
  Age: 84 Year
  Sex: Male

DRUGS (7)
  1. ALTEPLASE [Suspect]
     Indication: EMBOLIC STROKE
     Route: 042
     Dates: start: 20121220, end: 20121220
  2. EDARAVONE [Suspect]
     Indication: EMBOLIC STROKE
     Route: 041
     Dates: start: 20121220, end: 20121223
  3. HEPARIN SODIUM [Concomitant]
     Route: 041
     Dates: start: 20121221, end: 20121224
  4. TICLOPIDINE HYDROCHLORIDE [Concomitant]
     Route: 048
  5. ASPIRIN [Concomitant]
     Route: 048
  6. INSULIN [Concomitant]
  7. REHABILITATION THERAPY [Concomitant]

REACTIONS (1)
  - Renal disorder [Recovered/Resolved]
